FAERS Safety Report 6103836-4 (Version None)
Quarter: 2009Q1

REPORT INFORMATION
  Report Type: 
  Country: None (occurrence: None)
  Receive Date: 20090305
  Receipt Date: 20090302
  Transmission Date: 20090719
  Serious: Yes (Other)
  Sender: FDA-Public Use
  Company Number: US-ASTRAZENECA-2008UW18297

PATIENT
  Age: 63 Year
  Sex: Male
  Weight: 86.2 kg

DRUGS (3)
  1. SYMBICORT [Suspect]
     Indication: ASTHMA
     Route: 055
  2. SYMBICORT [Suspect]
     Indication: DYSPNOEA
     Route: 055
  3. UNSPECIFIED MEDICATION FOR HYPERTENSION [Concomitant]
     Indication: HYPERTENSION
     Route: 048

REACTIONS (2)
  - BLINDNESS UNILATERAL [None]
  - CATARACT [None]
